FAERS Safety Report 5308998-4 (Version None)
Quarter: 2007Q2

REPORT INFORMATION
  Report Type: 
  Country: None (occurrence: None)
  Receive Date: 20070420
  Receipt Date: 20070405
  Transmission Date: 20071010
  Serious: Yes (Other)
  Sender: FDA-Public Use
  Company Number: 2007-01765

PATIENT
  Sex: Female

DRUGS (1)
  1. TRELSTAR DEPOT [Suspect]
     Indication: PRECOCIOUS PUBERTY
     Dosage: UNK, X 10 INJECTIONS, INTRAMUSCULAR
     Route: 030
     Dates: start: 20070101

REACTIONS (4)
  - ANGIOEDEMA [None]
  - CROSS SENSITIVITY REACTION [None]
  - DRUG HYPERSENSITIVITY [None]
  - URTICARIA GENERALISED [None]
